FAERS Safety Report 7921333-8 (Version None)
Quarter: 2011Q4

REPORT INFORMATION
  Report Type: 
  Country: None (occurrence: None)
  Receive Date: 20111117
  Receipt Date: 20111107
  Transmission Date: 20120403
  Serious: Yes (Other)
  Sender: FDA-Public Use
  Company Number: US-BAYER-200928630NA

PATIENT
  Age: 49 Year
  Sex: Female
  Weight: 105 kg

DRUGS (16)
  1. ANTIBIOTICS [Concomitant]
  2. BENADRYL [Concomitant]
  3. YAZ [Suspect]
     Indication: PREMENSTRUAL SYNDROME
     Dosage: 1 DF
     Route: 048
     Dates: start: 20090501, end: 20090623
  4. YAZ [Suspect]
     Indication: GENITAL HAEMORRHAGE
  5. SINGULAIR [Concomitant]
     Indication: MULTIPLE ALLERGIES
     Dates: start: 20070101
  6. PHENTERMINE [Concomitant]
     Dosage: 37.5 MG, UNK
     Dates: start: 20090602
  7. SULFAMETHOXAZOLE AND TRIMETHOPRIM [Concomitant]
     Dosage: UNK
     Route: 048
     Dates: start: 20090602
  8. AUGMENTIN [Concomitant]
     Indication: CELLULITIS
     Dosage: UNK
     Dates: start: 20090602
  9. ASPIRIN [Concomitant]
  10. ADVAIR DISKUS 100/50 [Concomitant]
     Indication: ASTHMA
     Route: 055
     Dates: start: 20070101
  11. SEPTRA [Concomitant]
     Indication: CELLULITIS
  12. PHENTERMINE [Concomitant]
     Dates: start: 20090401
  13. ALBUTEROL [Concomitant]
  14. PROAIR HFA [Concomitant]
     Indication: ASTHMA
     Dosage: UNK
     Route: 055
     Dates: start: 20090309
  15. PROMETRIUM [Concomitant]
     Indication: MENSTRUAL DISORDER
     Dates: start: 20090424
  16. MEGACE [Concomitant]
     Indication: MENSTRUAL DISORDER
     Dosage: INTERMITTENT
     Dates: start: 20081201, end: 20090401

REACTIONS (4)
  - DEEP VEIN THROMBOSIS [None]
  - LIMB DISCOMFORT [None]
  - OEDEMA PERIPHERAL [None]
  - PAIN IN EXTREMITY [None]
